FAERS Safety Report 13026237 (Version 1)
Quarter: 2016Q4

REPORT INFORMATION
  Report Type: Spontaneous
  Country: US (occurrence: US)
  Receive Date: 20161214
  Receipt Date: 20161214
  Transmission Date: 20170207
  Serious: No
  Sender: FDA-Public Use
  Company Number: None

PATIENT
  Age: 81 Year
  Sex: Female
  Weight: 54.43 kg

DRUGS (9)
  1. ELIQUIS [Suspect]
     Active Substance: APIXABAN
     Indication: ATRIAL FIBRILLATION
     Dosage: 1   2  MOUTH
     Route: 048
     Dates: start: 20161117, end: 20161127
  2. OREGANO. [Concomitant]
     Active Substance: OREGANO
  3. COLLOIDAL MINERALS [Concomitant]
  4. FISH OIL [Concomitant]
     Active Substance: FISH OIL
  5. MULTIVITAMIN [Concomitant]
     Active Substance: VITAMINS
  6. CALCIUM-MAG [Concomitant]
  7. ANASTROZLE [Concomitant]
  8. GARLIC. [Concomitant]
     Active Substance: GARLIC
  9. OLIVE LEAF EX [Concomitant]

REACTIONS (3)
  - Balance disorder [None]
  - Dizziness [None]
  - Asthenia [None]

NARRATIVE: CASE EVENT DATE: 20161126
